FAERS Safety Report 11836347 (Version 3)
Quarter: 2016Q1

REPORT INFORMATION
  Report Type: Spontaneous
  Country: BR (occurrence: BR)
  Receive Date: 20151215
  Receipt Date: 20160223
  Transmission Date: 20160525
  Serious: Yes (Other)
  Sender: FDA-Public Use
  Company Number: BR-JNJFOC-20151207907

PATIENT

DRUGS (3)
  1. OSCAL [Concomitant]
     Active Substance: CALCIUM CARBONATE
     Route: 065
  2. INFLIXIMAB, RECOMBINANT [Suspect]
     Active Substance: INFLIXIMAB
     Indication: CROHN^S DISEASE
     Route: 042
     Dates: start: 2011, end: 201307
  3. INFLIXIMAB, RECOMBINANT [Suspect]
     Active Substance: INFLIXIMAB
     Indication: CROHN^S DISEASE
     Route: 042

REACTIONS (9)
  - Colitis ulcerative [Unknown]
  - Colitis [Unknown]
  - Psoriasis [Unknown]
  - Crohn^s disease [Unknown]
  - Adverse drug reaction [Unknown]
  - Urticaria [Unknown]
  - Drug intolerance [Unknown]
  - Weight decreased [Unknown]
  - Off label use [Unknown]
